FAERS Safety Report 13900102 (Version 2)
Quarter: 2017Q3

REPORT INFORMATION
  Report Type: Report from Study
  Country: TW (occurrence: TW)
  Receive Date: 20170823
  Receipt Date: 20170908
  Transmission Date: 20171127
  Serious: Yes (Hospitalization)
  Sender: FDA-Public Use
  Company Number: TW-EXELIXIS-XL18417010174

PATIENT
  Age: 63 Year
  Sex: Male
  Weight: 77 kg

DRUGS (9)
  1. SPIRONOLACTONE. [Concomitant]
     Active Substance: SPIRONOLACTONE
  2. FURSULTIAMINE [Concomitant]
     Active Substance: FURSULTIAMINE
  3. FUROSEMIDE. [Concomitant]
     Active Substance: FUROSEMIDE
  4. PANTOPRAZOLE [Concomitant]
     Active Substance: PANTOPRAZOLE
  5. XL184 [Suspect]
     Active Substance: CABOZANTINIB
     Indication: HEPATOCELLULAR CARCINOMA
     Dosage: 60 MG, QD
     Route: 048
     Dates: start: 20170703, end: 20170811
  6. MEGESTROL [Concomitant]
     Active Substance: MEGESTROL
  7. SILYMARIN [Concomitant]
     Active Substance: MILK THISTLE
  8. CARVEDILOL. [Concomitant]
     Active Substance: CARVEDILOL
  9. DOMPERIDONE [Concomitant]
     Active Substance: DOMPERIDONE

REACTIONS (1)
  - Gastroenteritis [Recovered/Resolved]

NARRATIVE: CASE EVENT DATE: 20170812
